FAERS Safety Report 8255879-2 (Version None)
Quarter: 2012Q1

REPORT INFORMATION
  Report Type: 
  Country: None (occurrence: None)
  Receive Date: 20120329
  Receipt Date: 20120319
  Transmission Date: 20120608
  Serious: Yes (Other)
  Sender: FDA-Public Use
  Company Number: 2012S1000342

PATIENT
  Age: 82 Year
  Sex: Female

DRUGS (2)
  1. GALANTAMINE HYDROBROMIDE [Concomitant]
  2. LIVALO [Suspect]
     Indication: HYPERCHOLESTEROLAEMIA
     Dosage: 2 MG; 1X; PO
     Route: 048
     Dates: start: 20120119, end: 20120314

REACTIONS (2)
  - PLATELET COUNT DECREASED [None]
  - VIRAL INFECTION [None]
